FAERS Safety Report 15663890 (Version 1)
Quarter: 2018Q4

REPORT INFORMATION
  Report Type: Spontaneous
  Country: US (occurrence: US)
  Receive Date: 20181128
  Receipt Date: 20181128
  Transmission Date: 20190205
  Serious: Yes (Other)
  Sender: FDA-Public Use
  Company Number: US-SUN PHARMACEUTICAL INDUSTRIES LTD-2018R1-191989

PATIENT
  Age: 71 Year
  Sex: Male

DRUGS (3)
  1. IMATINIB. [Suspect]
     Active Substance: IMATINIB MESYLATE
     Indication: EOSINOPHILIC LEUKAEMIA
  2. IMATINIB. [Suspect]
     Active Substance: IMATINIB MESYLATE
     Indication: MYELOPROLIFERATIVE NEOPLASM
     Dosage: UNKNOWN
     Route: 065
  3. IMATINIB. [Suspect]
     Active Substance: IMATINIB MESYLATE
     Indication: FIP1L1/PDGFR ALPHA FUSION KINASE POSITIVE

REACTIONS (2)
  - Neoplasm recurrence [Recovering/Resolving]
  - Acute myeloid leukaemia [Recovering/Resolving]
